FAERS Safety Report 6622052-0 (Version None)
Quarter: 2010Q1

REPORT INFORMATION
  Report Type: 
  Country: None (occurrence: None)
  Receive Date: 20100223
  Receipt Date: 20091023
  Transmission Date: 20100710
  Serious: No
  Sender: FDA-Public Use
  Company Number: 8053669

PATIENT
  Sex: Male
  Weight: 58.6 kg

DRUGS (4)
  1. CERTOLIZUMAB PEGOL (UCB, INC) [Suspect]
     Indication: CROHN'S DISEASE
     Dosage: (SUBCUTANEOUS)
     Route: 058
     Dates: start: 20091007
  2. PENTASA [Concomitant]
  3. NEXIUM [Concomitant]
  4. PROZAC [Concomitant]

REACTIONS (1)
  - DRUG INEFFECTIVE [None]
